FAERS Safety Report 5134101-X (Version None)
Quarter: 2006Q4

REPORT INFORMATION
  Report Type: 
  Country: None (occurrence: None)
  Receive Date: 20061024
  Receipt Date: 20061011
  Transmission Date: 20070319
  Serious: Yes (Other)
  Sender: FDA-Public Use
  Company Number: PHBS2006BR16036

PATIENT
  Sex: Female

DRUGS (4)
  1. TRILEPTAL [Suspect]
     Dosage: 300 MG, TID
     Route: 048
  2. LITHIUM CARBONATE [Concomitant]
     Dosage: 1800 MG/DAY
     Route: 048
  3. BIPERIDEN HYDROCHLORIDE TAB [Concomitant]
     Dosage: 600 MG/DAY
     Route: 048
  4. SEROQUEL [Concomitant]
     Dosage: 200 MG, TID
     Route: 048

REACTIONS (8)
  - ABNORMAL BEHAVIOUR [None]
  - AGGRESSION [None]
  - EATING DISORDER [None]
  - HALLUCINATION, AUDITORY [None]
  - INSOMNIA [None]
  - PANIC DISORDER [None]
  - PHYSICAL ASSAULT [None]
  - WEIGHT DECREASED [None]
